FAERS Safety Report 14358578 (Version 3)
Quarter: 2018Q4

REPORT INFORMATION
  Report Type: Report from Study
  Country: US (occurrence: US)
  Receive Date: 20180105
  Receipt Date: 20181228
  Transmission Date: 20190204
  Serious: No
  Sender: FDA-Public Use
  Company Number: US-SA-2017SA217212

PATIENT
  Age: 61 Year
  Sex: Female

DRUGS (1)
  1. DUPILUMAB [Suspect]
     Active Substance: DUPILUMAB
     Indication: DERMATITIS ATOPIC
     Dosage: 300 MG, QOW
     Route: 058
     Dates: start: 20140701

REACTIONS (13)
  - Fatigue [Unknown]
  - Rash pruritic [Not Recovered/Not Resolved]
  - Skin exfoliation [Not Recovered/Not Resolved]
  - Skin discolouration [Not Recovered/Not Resolved]
  - Back pain [Not Recovered/Not Resolved]
  - Product storage error [Not Recovered/Not Resolved]
  - Vision blurred [Not Recovered/Not Resolved]
  - Eczema eyelids [Unknown]
  - Arthralgia [Not Recovered/Not Resolved]
  - Eye discharge [Not Recovered/Not Resolved]
  - Injection site haemorrhage [Recovered/Resolved]
  - Therapeutic response unexpected [Unknown]
  - Spinal disorder [Not Recovered/Not Resolved]

NARRATIVE: CASE EVENT DATE: 2017
